FAERS Safety Report 22073292 (Version 2)
Quarter: 2023Q2

REPORT INFORMATION
  Report Type: Report from Study
  Country: US (occurrence: US)
  Receive Date: 20230308
  Receipt Date: 20230417
  Transmission Date: 20230722
  Serious: Yes (Hospitalization)
  Sender: FDA-Public Use
  Company Number: US-SECURA BIO, INC.-2023-SECUR-US000021

PATIENT

DRUGS (5)
  1. DUVELISIB [Suspect]
     Active Substance: DUVELISIB
     Indication: Squamous cell carcinoma of head and neck
     Dosage: 25 MG, BID
     Route: 048
     Dates: start: 20220420
  2. DUVELISIB [Suspect]
     Active Substance: DUVELISIB
     Dosage: 15 MG, BID
     Route: 048
     Dates: start: 20221108, end: 20230215
  3. DOCETAXEL [Suspect]
     Active Substance: DOCETAXEL
     Indication: Squamous cell carcinoma of head and neck
     Dosage: 75 MG/M2
     Route: 042
     Dates: start: 20220427
  4. DOCETAXEL [Suspect]
     Active Substance: DOCETAXEL
     Dosage: 56 MG/M2
     Route: 042
     Dates: start: 20220629
  5. DOCETAXEL [Suspect]
     Active Substance: DOCETAXEL
     Dosage: 37 MG/M2
     Route: 042
     Dates: start: 20220824, end: 20220914

REACTIONS (1)
  - Palmar-plantar erythrodysaesthesia syndrome [Recovered/Resolved]

NARRATIVE: CASE EVENT DATE: 20230217
